FAERS Safety Report 12621561 (Version 3)
Quarter: 2016Q3

REPORT INFORMATION
  Report Type: Spontaneous
  Country: US (occurrence: US)
  Receive Date: 20160804
  Receipt Date: 20160808
  Transmission Date: 20161109
  Serious: No
  Sender: FDA-Public Use
  Company Number: US-BEH-2016058670

PATIENT
  Age: 59 Year
  Sex: Female
  Weight: 79 kg

DRUGS (1)
  1. HIZENTRA [Suspect]
     Active Substance: HUMAN IMMUNOGLOBULIN G
     Indication: IMMUNE SYSTEM DISORDER
     Route: 058
     Dates: start: 20140804, end: 20151213

REACTIONS (2)
  - Saliva altered [Unknown]
  - Tooth disorder [Unknown]

NARRATIVE: CASE EVENT DATE: 20151217
